FAERS Safety Report 23638036 (Version 1)
Quarter: 2024Q1

REPORT INFORMATION
  Report Type: Spontaneous
  Country: US (occurrence: US)
  Receive Date: 20240315
  Receipt Date: 20240315
  Transmission Date: 20240409
  Serious: Yes (Other)
  Sender: FDA-Public Use
  Company Number: US-JNJFOC-20240312634

PATIENT
  Sex: Male

DRUGS (1)
  1. CARVYKTI [Suspect]
     Active Substance: CILTACABTAGENE AUTOLEUCEL
     Indication: Plasma cell myeloma
     Dosage: DIN: W387123-400669, BAG ID: CLC.JI2111.F01 AND SUBJECT ID/CARVYKTI NUMBER: US-10251694. PATIENT REC
     Route: 065
     Dates: start: 20240124, end: 20240124

REACTIONS (4)
  - Bell^s palsy [Unknown]
  - Neurotoxicity [Unknown]
  - Tremor [Unknown]
  - Gait disturbance [Unknown]
